FAERS Safety Report 5265681-1 (Version None)
Quarter: 2007Q1

REPORT INFORMATION
  Report Type: 
  Country: None (occurrence: None)
  Receive Date: 20061213
  Receipt Date: 20040212
  Transmission Date: 20070707
  Serious: Yes (Other)
  Sender: FDA-Public Use
  Company Number: 2004UW02513

PATIENT
  Age: 83 Year
  Sex: Female
  Weight: 53.978 kg

DRUGS (4)
  1. IRESSA [Suspect]
     Indication: NON-SMALL CELL LUNG CANCER
     Dosage: 250 MG
  2. ZOCOR [Concomitant]
  3. ZOLOFT [Concomitant]
  4. ZYPREXA [Concomitant]

REACTIONS (3)
  - DIARRHOEA [None]
  - PAIN IN EXTREMITY [None]
  - SKIN WRINKLING [None]
